FAERS Safety Report 6267763-4 (Version None)
Quarter: 2009Q3

REPORT INFORMATION
  Report Type: 
  Country: None (occurrence: None)
  Receive Date: 20090714
  Receipt Date: 20090702
  Transmission Date: 20100115
  Serious: Yes (Hospitalization)
  Sender: FDA-Public Use
  Company Number: AU-BAUSCH-2009BL003256

PATIENT
  Age: 81 Year
  Sex: Male

DRUGS (1)
  1. PREDNISOLONE [Suspect]
     Indication: VIITH NERVE PARALYSIS
     Route: 048

REACTIONS (5)
  - CORNEAL PERFORATION [None]
  - HERPES ZOSTER [None]
  - HYPOPYON [None]
  - NECROTISING RETINITIS [None]
  - PSEUDOMONAS INFECTION [None]
